FAERS Safety Report 5288969-7 (Version None)
Quarter: 2007Q1

REPORT INFORMATION
  Report Type: 
  Country: None (occurrence: None)
  Receive Date: 20070117
  Receipt Date: 20051130
  Transmission Date: 20070707
  Serious: Yes (Other)
  Sender: FDA-Public Use
  Company Number: 426682

PATIENT
  Age: 31 Year
  Sex: Male

DRUGS (19)
  1. CEFTRIAXONE [Suspect]
     Indication: MENINGITIS PNEUMOCOCCAL
     Dosage: 2 GRAM 1 PER 12 HOUR INTRAVENOUS
     Route: 042
  2. VANCOMYCIN HYDROCHLORIDE [Concomitant]
  3. DEXAMETHASONE TAB [Concomitant]
  4. MIDAZOLAM HCL [Concomitant]
  5. FENTANYL [Concomitant]
  6. LORAZEPAM [Concomitant]
  7. HALOPERIDOL [Concomitant]
  8. METRONIDAZOLE [Concomitant]
  9. CORTISPORIN (*BACITRACIN ZINC/HYDROCORTISONE/NEOMYCIN SULFATE/POLYMYXI [Concomitant]
  10. OXYMETAZOLINE (OXYMETAZOLINE HYDROCHLORIDE) [Concomitant]
  11. HEPARIN [Concomitant]
  12. POTASSIUM PHOSPHATES [Concomitant]
  13. SODIUM PHOSPHATE (SODIUM PHOSPATE, DIBASIC) [Concomitant]
  14. INSULIN (INSULIN) [Concomitant]
  15. PROPOFOL [Concomitant]
  16. ACETAMINOPHEN [Concomitant]
  17. MULTIVITAMIN PLUS CALCIUM (CALCIUM/MULTIVITAMIN NOS) [Concomitant]
  18. BISACODYL (BISACODYL) [Concomitant]
  19. CAFFEINE (CAFFEINE) [Concomitant]

REACTIONS (1)
  - HEPATIC ENZYME INCREASED [None]
